FAERS Safety Report 4809909-8 (Version None)
Quarter: 2005Q4

REPORT INFORMATION
  Report Type: 
  Country: None (occurrence: None)
  Receive Date: 20051024
  Receipt Date: 20051024
  Transmission Date: 20060501
  Serious: Yes (Hospitalization)
  Sender: FDA-Public Use
  Company Number: None

PATIENT
  Age: 69 Year
  Sex: Female
  Weight: 58.8 kg

DRUGS (1)
  1. KEPPRA [Suspect]
     Indication: CONVULSION
     Dosage: BETWEEN 1/18 TO 2/23/2005
     Dates: start: 20050118, end: 20050223

REACTIONS (4)
  - ANAEMIA [None]
  - COUGH [None]
  - HEADACHE [None]
  - LEUKOPENIA [None]
